FAERS Safety Report 5391345-X (Version None)
Quarter: 2007Q3

REPORT INFORMATION
  Report Type: 
  Country: None (occurrence: None)
  Receive Date: 20070716
  Receipt Date: 20070716
  Transmission Date: 20080115
  Serious: No
  Sender: FDA-Public Use
  Company Number: None

PATIENT
  Sex: Female

DRUGS (2)
  1. CODEINE SUL TAB [Suspect]
     Dosage: TABLET
  2. MORPHINE SULFATE [Suspect]
     Dosage: TABLET

REACTIONS (7)
  - ASTHMA [None]
  - BIPOLAR DISORDER [None]
  - DRUG DISPENSING ERROR [None]
  - HYPERTENSION [None]
  - MEDICATION ERROR [None]
  - OVERDOSE [None]
  - WRONG DRUG ADMINISTERED [None]
